FAERS Safety Report 6017211-4 (Version None)
Quarter: 2008Q4

REPORT INFORMATION
  Report Type: 
  Country: None (occurrence: None)
  Receive Date: 20081219
  Receipt Date: 20081205
  Transmission Date: 20090506
  Serious: Yes (Hospitalization, Other)
  Sender: FDA-Public Use
  Company Number: 2008ST000249

PATIENT
  Age: 58 Year
  Sex: Female
  Weight: 63.5036 kg

DRUGS (9)
  1. ZEGERID [Suspect]
     Indication: GASTROOESOPHAGEAL REFLUX DISEASE
     Dosage: 40 MG; QD; PO
     Route: 048
     Dates: start: 20060101
  2. ZEGERID [Suspect]
  3. OXYCONTIN [Concomitant]
  4. FENTANYL-100 [Concomitant]
  5. OXYCODONE [Concomitant]
  6. DURASEGIC [Concomitant]
  7. LEXAPRO [Concomitant]
  8. TRAZODONE [Concomitant]
  9. THYROID TAB [Concomitant]

REACTIONS (15)
  - ABDOMINAL PAIN UPPER [None]
  - ARTHRALGIA [None]
  - BLOOD LEAD INCREASED [None]
  - BURNING SENSATION MUCOSAL [None]
  - CLOSTRIDIUM DIFFICILE COLITIS [None]
  - DELUSIONAL DISORDER, UNSPECIFIED TYPE [None]
  - DYSPHONIA [None]
  - GLOSSODYNIA [None]
  - HEADACHE [None]
  - MYALGIA [None]
  - NECK PAIN [None]
  - PRODUCT TAMPERING [None]
  - PSYCHOTIC DISORDER [None]
  - SKIN BURNING SENSATION [None]
  - VOMITING PROJECTILE [None]
